FAERS Safety Report 15900167 (Version 2)
Quarter: 2019Q1

REPORT INFORMATION
  Report Type: Spontaneous
  Country: US (occurrence: US)
  Receive Date: 20190201
  Receipt Date: 20190204
  Transmission Date: 20190417
  Serious: No
  Sender: FDA-Public Use
  Company Number: US-BAYER-2019-023395

PATIENT
  Age: 82 Year
  Sex: Female

DRUGS (7)
  1. CLARITIN [Suspect]
     Active Substance: LORATADINE
     Indication: NASOPHARYNGITIS
  2. DELSYM [Concomitant]
     Active Substance: DEXTROMETHORPHAN
     Indication: HYPERSENSITIVITY
  3. CLARITIN [Suspect]
     Active Substance: LORATADINE
     Indication: HYPERSENSITIVITY
     Dosage: 1 DF, PRN
     Route: 048
     Dates: start: 20190130, end: 20190130
  4. NITE-TIME COLD MEDICINE [Concomitant]
  5. DELSYM [Concomitant]
     Active Substance: DEXTROMETHORPHAN
     Indication: NASOPHARYNGITIS
  6. ANTACID [CALCIUM CARBONATE] [Concomitant]
     Dosage: UNK
  7. VITAMIN 15 [Concomitant]

REACTIONS (1)
  - Extra dose administered [Recovered/Resolved]

NARRATIVE: CASE EVENT DATE: 20190131
